FAERS Safety Report 8798943 (Version 1)
Quarter: 2012Q4

REPORT INFORMATION
  Report Type: 
  Country: DE (occurrence: DE)
  Receive Date: 20120920
  Receipt Date: 20120920
  Transmission Date: 20130627
  Serious: Yes (Congenital Anomaly)
  Sender: FDA-Public Use
  Company Number: DE-TEVA-357627GER

PATIENT
  Sex: Male
  Weight: 3.16 kg

DRUGS (3)
  1. FLUOXETINE [Suspect]
     Route: 064
     Dates: start: 20091113, end: 20100807
  2. FOLIO FORTE [Concomitant]
     Route: 064
  3. UTROGEST [Concomitant]
     Route: 064
     Dates: start: 20100625

REACTIONS (1)
  - Atrial septal defect [Unknown]
